FAERS Safety Report 24152364 (Version 1)
Quarter: 2024Q3

REPORT INFORMATION
  Report Type: Spontaneous
  Country: JP (occurrence: JP)
  Receive Date: 20240730
  Receipt Date: 20240730
  Transmission Date: 20241017
  Serious: No
  Sender: PFIZER
  Company Number: JP-PFIZER INC-202400224195

PATIENT

DRUGS (1)
  1. PAXLOVID [Suspect]
     Active Substance: NIRMATRELVIR\RITONAVIR
     Indication: COVID-19 treatment
     Dosage: TAKING 2 OF THE SAME TABLET, AND THE NEXT TIME TAKING 2 OF THE OTHER KIND OF TABLET
     Route: 048

REACTIONS (1)
  - Incorrect dosage administered [Unknown]
